FAERS Safety Report 17723326 (Version 2)
Quarter: 2020Q2

REPORT INFORMATION
  Report Type: Spontaneous
  Country: FR (occurrence: FR)
  Receive Date: 20200429
  Receipt Date: 20200514
  Transmission Date: 20200714
  Serious: Yes (Life-Threatening, Other)
  Sender: FDA-Public Use
  Company Number: NVSC2020FR111634

PATIENT
  Age: 66 Year
  Sex: Female

DRUGS (7)
  1. TOPOTECAN HYDROCHLORIDE. [Suspect]
     Active Substance: TOPOTECAN HYDROCHLORIDE
     Indication: MALIGNANT HISTIOCYTOSIS
     Dosage: 0.75 MG/M2, CYCLIC (J1-J5)
     Route: 065
  2. PREDNISONE. [Concomitant]
     Active Substance: PREDNISONE
     Indication: MALIGNANT HISTIOCYTOSIS
     Dosage: UNK, CYCLIC
     Route: 065
  3. CYCLOPHOSPHAMIDE. [Concomitant]
     Active Substance: CYCLOPHOSPHAMIDE
     Indication: MALIGNANT HISTIOCYTOSIS
     Dosage: UNK UNK, CYCLIC
     Route: 065
  4. TEMOZOLOMIDE. [Suspect]
     Active Substance: TEMOZOLOMIDE
     Indication: MALIGNANT HISTIOCYTOSIS
     Dosage: 150 MG/M2, CYCLIC, D1-D5
     Route: 065
  5. CLADRIBINE. [Concomitant]
     Active Substance: CLADRIBINE
     Indication: MALIGNANT HISTIOCYTOSIS
     Dosage: UNK UNK, CYCLIC (SIX CYCLES)
     Route: 065
  6. VINCRISTINE [Concomitant]
     Active Substance: VINCRISTINE
     Indication: MALIGNANT HISTIOCYTOSIS
     Dosage: UNK, CYCLIC
     Route: 065
  7. DOXORUBICIN [Concomitant]
     Active Substance: DOXORUBICIN
     Indication: MALIGNANT HISTIOCYTOSIS
     Dosage: UNK, CYCLIC
     Route: 065

REACTIONS (3)
  - Toxicity to various agents [Unknown]
  - Off label use [Unknown]
  - Haematotoxicity [Unknown]
